FAERS Safety Report 12528433 (Version 2)
Quarter: 2016Q4

REPORT INFORMATION
  Report Type: Spontaneous
  Country: FR (occurrence: FR)
  Receive Date: 20160705
  Receipt Date: 20161028
  Transmission Date: 20170207
  Serious: Yes (Hospitalization)
  Sender: FDA-Public Use
  Company Number: FR-JNJFOC-20160626470

PATIENT
  Age: 36 Year
  Sex: Male

DRUGS (5)
  1. FORLAX [Concomitant]
     Active Substance: POLYETHYLENE GLYCOL 4000
     Route: 065
  2. METOJECT [Concomitant]
     Active Substance: METHOTREXATE SODIUM
     Route: 065
     Dates: start: 201605
  3. ACTISKENAN [Concomitant]
     Active Substance: MORPHINE SULFATE
     Route: 065
  4. SIMPONI [Suspect]
     Active Substance: GOLIMUMAB
     Indication: ANKYLOSING SPONDYLITIS
     Route: 058
     Dates: start: 20160530
  5. SKENAN [Concomitant]
     Active Substance: MORPHINE SULFATE
     Route: 065

REACTIONS (7)
  - Gastritis [Unknown]
  - Abdominal pain upper [Not Recovered/Not Resolved]
  - Pyrexia [Not Recovered/Not Resolved]
  - Gastrooesophageal sphincter insufficiency [Unknown]
  - Lymphopenia [Unknown]
  - Nausea [Not Recovered/Not Resolved]
  - Duodenitis [Unknown]

NARRATIVE: CASE EVENT DATE: 201606
